FAERS Safety Report 14540164 (Version 1)
Quarter: 2018Q1

REPORT INFORMATION
  Report Type: Spontaneous
  Country: CA (occurrence: CA)
  Receive Date: 20180216
  Receipt Date: 20180216
  Transmission Date: 20180509
  Serious: No
  Sender: FDA-Public Use
  Company Number: CA-HILL DERMACEUTICALS, INC.-2042155

PATIENT
  Age: 43 Year
  Sex: Female
  Weight: 136 kg

DRUGS (7)
  1. SYNTHROID [Concomitant]
     Active Substance: LEVOTHYROXINE SODIUM
  2. TECTA FOR BOWELS [Concomitant]
  3. BISOPROLOL FUMARATE. [Concomitant]
     Active Substance: BISOPROLOL FUMARATE
  4. COZAAR [Concomitant]
     Active Substance: LOSARTAN POTASSIUM
  5. TRAMADOL. [Concomitant]
     Active Substance: TRAMADOL
  6. DERMA-SMOOTHE/FS [Suspect]
     Active Substance: FLUOCINOLONE ACETONIDE
  7. GLICLAZIDE FOR DIABETES [Concomitant]

REACTIONS (1)
  - Therapy non-responder [Unknown]
